FAERS Safety Report 26209952 (Version 1)
Quarter: 2025Q4

REPORT INFORMATION
  Report Type: Spontaneous
  Country: EU (occurrence: EU)
  Receive Date: 20251229
  Receipt Date: 20251229
  Transmission Date: 20260117
  Serious: Yes (Other)
  Sender: MYLAN
  Company Number: EU-PPDUS-2024RHM000654

PATIENT
  Age: 42 Year
  Sex: Male
  Weight: 114 kg

DRUGS (104)
  1. VENLAFAXINE [Suspect]
     Active Substance: VENLAFAXINE HYDROCHLORIDE
     Indication: Depression
     Dosage: 75 MILLIGRAM
  2. VENLAFAXINE [Suspect]
     Active Substance: VENLAFAXINE HYDROCHLORIDE
     Dosage: 75 MILLIGRAM
     Route: 065
  3. VENLAFAXINE [Suspect]
     Active Substance: VENLAFAXINE HYDROCHLORIDE
     Dosage: 75 MILLIGRAM
     Route: 065
  4. VENLAFAXINE [Suspect]
     Active Substance: VENLAFAXINE HYDROCHLORIDE
     Dosage: 75 MILLIGRAM
  5. RAMIPRIL [Suspect]
     Active Substance: RAMIPRIL
     Indication: Hypertension
     Dosage: 5 MILLIGRAM
  6. RAMIPRIL [Suspect]
     Active Substance: RAMIPRIL
     Dosage: 5 MILLIGRAM
  7. RAMIPRIL [Suspect]
     Active Substance: RAMIPRIL
     Dosage: 5 MILLIGRAM
     Route: 065
  8. RAMIPRIL [Suspect]
     Active Substance: RAMIPRIL
     Dosage: 5 MILLIGRAM
     Route: 065
  9. RAMIPRIL [Suspect]
     Active Substance: RAMIPRIL
     Dosage: 2.5 MILLIGRAM, QD
     Dates: start: 20240919
  10. RAMIPRIL [Suspect]
     Active Substance: RAMIPRIL
     Dosage: 2.5 MILLIGRAM, QD
     Dates: start: 20240919
  11. RAMIPRIL [Suspect]
     Active Substance: RAMIPRIL
     Dosage: 2.5 MILLIGRAM, QD
     Route: 065
     Dates: start: 20240919
  12. RAMIPRIL [Suspect]
     Active Substance: RAMIPRIL
     Dosage: 2.5 MILLIGRAM, QD
     Route: 065
     Dates: start: 20240919
  13. RAMIPRIL [Suspect]
     Active Substance: RAMIPRIL
     Dosage: 1 DOSAGE FORMS, QD
     Dates: start: 20241011, end: 20250110
  14. RAMIPRIL [Suspect]
     Active Substance: RAMIPRIL
     Dosage: 1 DOSAGE FORMS, QD
     Route: 065
     Dates: start: 20241011, end: 20250110
  15. RAMIPRIL [Suspect]
     Active Substance: RAMIPRIL
     Dosage: 1 DOSAGE FORMS, QD
     Dates: start: 20241011, end: 20250110
  16. RAMIPRIL [Suspect]
     Active Substance: RAMIPRIL
     Dosage: 1 DOSAGE FORMS, QD
     Route: 065
     Dates: start: 20241011, end: 20250110
  17. IMCIVREE [Suspect]
     Active Substance: SETMELANOTIDE
     Indication: Gene mutation
     Dosage: UNK UNK
  18. IMCIVREE [Suspect]
     Active Substance: SETMELANOTIDE
     Dosage: UNK UNK
  19. IMCIVREE [Suspect]
     Active Substance: SETMELANOTIDE
     Dosage: UNK UNK
     Route: 058
  20. IMCIVREE [Suspect]
     Active Substance: SETMELANOTIDE
     Dosage: UNK UNK
     Route: 058
  21. IMCIVREE [Suspect]
     Active Substance: SETMELANOTIDE
     Dosage: 3 MILLIGRAM, QD
  22. IMCIVREE [Suspect]
     Active Substance: SETMELANOTIDE
     Dosage: 3 MILLIGRAM, QD
  23. IMCIVREE [Suspect]
     Active Substance: SETMELANOTIDE
     Dosage: 3 MILLIGRAM, QD
     Route: 058
  24. IMCIVREE [Suspect]
     Active Substance: SETMELANOTIDE
     Dosage: 3 MILLIGRAM, QD
     Route: 058
  25. IMCIVREE [Suspect]
     Active Substance: SETMELANOTIDE
     Dosage: DOSE REDUCED, 2.5 MILLIGRAM, QD
     Dates: start: 202406
  26. IMCIVREE [Suspect]
     Active Substance: SETMELANOTIDE
     Dosage: DOSE REDUCED, 2.5 MILLIGRAM, QD
     Route: 058
     Dates: start: 202406
  27. IMCIVREE [Suspect]
     Active Substance: SETMELANOTIDE
     Dosage: DOSE REDUCED, 2.5 MILLIGRAM, QD
     Dates: start: 202406
  28. IMCIVREE [Suspect]
     Active Substance: SETMELANOTIDE
     Dosage: DOSE REDUCED, 2.5 MILLIGRAM, QD
     Route: 058
     Dates: start: 202406
  29. IMCIVREE [Suspect]
     Active Substance: SETMELANOTIDE
     Dosage: 2 MILLIGRAM, QD
     Dates: start: 20240919
  30. IMCIVREE [Suspect]
     Active Substance: SETMELANOTIDE
     Dosage: 2 MILLIGRAM, QD
     Dates: start: 20240919
  31. IMCIVREE [Suspect]
     Active Substance: SETMELANOTIDE
     Dosage: 2 MILLIGRAM, QD
     Route: 058
     Dates: start: 20240919
  32. IMCIVREE [Suspect]
     Active Substance: SETMELANOTIDE
     Dosage: 2 MILLIGRAM, QD
     Route: 058
     Dates: start: 20240919
  33. IMCIVREE [Suspect]
     Active Substance: SETMELANOTIDE
     Dosage: 3 MILLIGRAM, QD
  34. IMCIVREE [Suspect]
     Active Substance: SETMELANOTIDE
     Dosage: 3 MILLIGRAM, QD
  35. IMCIVREE [Suspect]
     Active Substance: SETMELANOTIDE
     Dosage: 3 MILLIGRAM, QD
     Route: 058
  36. IMCIVREE [Suspect]
     Active Substance: SETMELANOTIDE
     Dosage: 3 MILLIGRAM, QD
     Route: 058
  37. IMCIVREE [Suspect]
     Active Substance: SETMELANOTIDE
     Dosage: 2 MILLIGRAM, QD
     Dates: start: 20250212
  38. IMCIVREE [Suspect]
     Active Substance: SETMELANOTIDE
     Dosage: 2 MILLIGRAM, QD
     Dates: start: 20250212
  39. IMCIVREE [Suspect]
     Active Substance: SETMELANOTIDE
     Dosage: 2 MILLIGRAM, QD
     Route: 058
     Dates: start: 20250212
  40. IMCIVREE [Suspect]
     Active Substance: SETMELANOTIDE
     Dosage: 2 MILLIGRAM, QD
     Route: 058
     Dates: start: 20250212
  41. IMCIVREE [Suspect]
     Active Substance: SETMELANOTIDE
     Dosage: 2 MILLIGRAM, QD
     Dates: start: 20251113
  42. IMCIVREE [Suspect]
     Active Substance: SETMELANOTIDE
     Dosage: 2 MILLIGRAM, QD
     Dates: start: 20251113
  43. IMCIVREE [Suspect]
     Active Substance: SETMELANOTIDE
     Dosage: 2 MILLIGRAM, QD
     Route: 058
     Dates: start: 20251113
  44. IMCIVREE [Suspect]
     Active Substance: SETMELANOTIDE
     Dosage: 2 MILLIGRAM, QD
     Route: 058
     Dates: start: 20251113
  45. HYDROCHLOROTHIAZIDE [Suspect]
     Active Substance: HYDROCHLOROTHIAZIDE
     Indication: Hypertension
     Dosage: 12.5 UNK
     Route: 061
  46. HYDROCHLOROTHIAZIDE [Suspect]
     Active Substance: HYDROCHLOROTHIAZIDE
     Dosage: 12.5 UNK
     Route: 048
  47. HYDROCHLOROTHIAZIDE [Suspect]
     Active Substance: HYDROCHLOROTHIAZIDE
     Dosage: 12.5 UNK
     Route: 048
  48. HYDROCHLOROTHIAZIDE [Suspect]
     Active Substance: HYDROCHLOROTHIAZIDE
     Dosage: 12.5 UNK
     Route: 061
  49. MORPHINE SULFATE [Concomitant]
     Active Substance: MORPHINE SULFATE
     Indication: Pain
     Dosage: 5 MILLIGRAM, BID
     Dates: start: 202404
  50. MORPHINE SULFATE [Concomitant]
     Active Substance: MORPHINE SULFATE
     Dosage: 5 MILLIGRAM, BID
     Dates: start: 202404
  51. MORPHINE SULFATE [Concomitant]
     Active Substance: MORPHINE SULFATE
     Dosage: 5 MILLIGRAM, BID
     Route: 065
     Dates: start: 202404
  52. MORPHINE SULFATE [Concomitant]
     Active Substance: MORPHINE SULFATE
     Dosage: 5 MILLIGRAM, BID
     Route: 065
     Dates: start: 202404
  53. MORPHINE SULFATE [Concomitant]
     Active Substance: MORPHINE SULFATE
     Dosage: 3 DOSAGE FORMS
     Dates: start: 20241011, end: 20241217
  54. MORPHINE SULFATE [Concomitant]
     Active Substance: MORPHINE SULFATE
     Dosage: 3 DOSAGE FORMS
     Dates: start: 20241011, end: 20241217
  55. MORPHINE SULFATE [Concomitant]
     Active Substance: MORPHINE SULFATE
     Dosage: 3 DOSAGE FORMS
     Route: 065
     Dates: start: 20241011, end: 20241217
  56. MORPHINE SULFATE [Concomitant]
     Active Substance: MORPHINE SULFATE
     Dosage: 3 DOSAGE FORMS
     Route: 065
     Dates: start: 20241011, end: 20241217
  57. MORPHINE SULFATE [Concomitant]
     Active Substance: MORPHINE SULFATE
     Dosage: 6 DOSAGE FORMS
     Dates: start: 20241217, end: 20250110
  58. MORPHINE SULFATE [Concomitant]
     Active Substance: MORPHINE SULFATE
     Dosage: 6 DOSAGE FORMS
     Route: 065
     Dates: start: 20241217, end: 20250110
  59. MORPHINE SULFATE [Concomitant]
     Active Substance: MORPHINE SULFATE
     Dosage: 6 DOSAGE FORMS
     Dates: start: 20241217, end: 20250110
  60. MORPHINE SULFATE [Concomitant]
     Active Substance: MORPHINE SULFATE
     Dosage: 6 DOSAGE FORMS
     Route: 065
     Dates: start: 20241217, end: 20250110
  61. FENTANYL [Concomitant]
     Active Substance: FENTANYL
     Indication: Pain
     Dosage: ONGOING, 12 MICROGRAM, TID
     Dates: start: 202404
  62. FENTANYL [Concomitant]
     Active Substance: FENTANYL
     Dosage: ONGOING, 12 MICROGRAM, TID
     Route: 065
     Dates: start: 202404
  63. FENTANYL [Concomitant]
     Active Substance: FENTANYL
     Dosage: ONGOING, 12 MICROGRAM, TID
     Route: 065
     Dates: start: 202404
  64. FENTANYL [Concomitant]
     Active Substance: FENTANYL
     Dosage: ONGOING, 12 MICROGRAM, TID
     Dates: start: 202404
  65. PAROXETINE HYDROCHLORIDE [Concomitant]
     Active Substance: PAROXETINE HYDROCHLORIDE
     Indication: Depression
     Dosage: 0.25 MILLIGRAM, QD
     Dates: start: 20220721
  66. PAROXETINE HYDROCHLORIDE [Concomitant]
     Active Substance: PAROXETINE HYDROCHLORIDE
     Dosage: 0.25 MILLIGRAM, QD
     Route: 065
     Dates: start: 20220721
  67. PAROXETINE HYDROCHLORIDE [Concomitant]
     Active Substance: PAROXETINE HYDROCHLORIDE
     Dosage: 0.25 MILLIGRAM, QD
     Route: 065
     Dates: start: 20220721
  68. PAROXETINE HYDROCHLORIDE [Concomitant]
     Active Substance: PAROXETINE HYDROCHLORIDE
     Dosage: 0.25 MILLIGRAM, QD
     Dates: start: 20220721
  69. ALPRAZOLAM [Concomitant]
     Active Substance: ALPRAZOLAM
     Indication: Depression
     Dosage: 0.25 MILLIGRAM, QD
     Dates: start: 20220101
  70. ALPRAZOLAM [Concomitant]
     Active Substance: ALPRAZOLAM
     Indication: Anxiety
     Dosage: 0.25 MILLIGRAM, QD
     Route: 065
     Dates: start: 20220101
  71. ALPRAZOLAM [Concomitant]
     Active Substance: ALPRAZOLAM
     Dosage: 0.25 MILLIGRAM, QD
     Route: 065
     Dates: start: 20220101
  72. ALPRAZOLAM [Concomitant]
     Active Substance: ALPRAZOLAM
     Dosage: 0.25 MILLIGRAM, QD
     Dates: start: 20220101
  73. OXYCODONE [Concomitant]
     Active Substance: OXYCODONE
     Indication: Back pain
     Dosage: 4 DOSAGE FORMS
  74. OXYCODONE [Concomitant]
     Active Substance: OXYCODONE
     Dosage: 4 DOSAGE FORMS
  75. OXYCODONE [Concomitant]
     Active Substance: OXYCODONE
     Dosage: 4 DOSAGE FORMS
     Route: 065
  76. OXYCODONE [Concomitant]
     Active Substance: OXYCODONE
     Dosage: 4 DOSAGE FORMS
     Route: 065
  77. OXYCODONE [Concomitant]
     Active Substance: OXYCODONE
     Dosage: 2 DOSAGE FORMS
  78. OXYCODONE [Concomitant]
     Active Substance: OXYCODONE
     Dosage: 2 DOSAGE FORMS
  79. OXYCODONE [Concomitant]
     Active Substance: OXYCODONE
     Dosage: 2 DOSAGE FORMS
     Route: 065
  80. OXYCODONE [Concomitant]
     Active Substance: OXYCODONE
     Dosage: 2 DOSAGE FORMS
     Route: 065
  81. OXYCODONE [Concomitant]
     Active Substance: OXYCODONE
     Dosage: 4 DOSAGE FORMS
  82. OXYCODONE [Concomitant]
     Active Substance: OXYCODONE
     Dosage: 4 DOSAGE FORMS
     Route: 065
  83. OXYCODONE [Concomitant]
     Active Substance: OXYCODONE
     Dosage: 4 DOSAGE FORMS
  84. OXYCODONE [Concomitant]
     Active Substance: OXYCODONE
     Dosage: 4 DOSAGE FORMS
     Route: 065
  85. VALIUM [Concomitant]
     Active Substance: DIAZEPAM
     Indication: Product used for unknown indication
     Dosage: 20 MILLIGRAM
  86. VALIUM [Concomitant]
     Active Substance: DIAZEPAM
     Dosage: 20 MILLIGRAM
  87. VALIUM [Concomitant]
     Active Substance: DIAZEPAM
     Dosage: 20 MILLIGRAM
     Route: 065
  88. VALIUM [Concomitant]
     Active Substance: DIAZEPAM
     Dosage: 20 MILLIGRAM
     Route: 065
  89. VALIUM [Concomitant]
     Active Substance: DIAZEPAM
     Dosage: 20 MILLIGRAM (4 TABLETS)
  90. VALIUM [Concomitant]
     Active Substance: DIAZEPAM
     Dosage: 20 MILLIGRAM (4 TABLETS)
  91. VALIUM [Concomitant]
     Active Substance: DIAZEPAM
     Dosage: 20 MILLIGRAM (4 TABLETS)
     Route: 065
  92. VALIUM [Concomitant]
     Active Substance: DIAZEPAM
     Dosage: 20 MILLIGRAM (4 TABLETS)
     Route: 065
  93. CHLORPROMAZINE [Concomitant]
     Active Substance: CHLORPROMAZINE
     Indication: Anxiety
     Dosage: UNK UNK
     Dates: start: 20241230, end: 202501
  94. CHLORPROMAZINE [Concomitant]
     Active Substance: CHLORPROMAZINE
     Dosage: UNK UNK
     Route: 065
     Dates: start: 20241230, end: 202501
  95. CHLORPROMAZINE [Concomitant]
     Active Substance: CHLORPROMAZINE
     Dosage: UNK UNK
     Route: 065
     Dates: start: 20241230, end: 202501
  96. CHLORPROMAZINE [Concomitant]
     Active Substance: CHLORPROMAZINE
     Dosage: UNK UNK
     Dates: start: 20241230, end: 202501
  97. LORAZEPAM [Concomitant]
     Active Substance: LORAZEPAM
     Indication: Product used for unknown indication
     Dosage: 1 DOSAGE FORMS, BID
     Dates: start: 20241217
  98. LORAZEPAM [Concomitant]
     Active Substance: LORAZEPAM
     Dosage: 1 DOSAGE FORMS, BID
     Route: 065
     Dates: start: 20241217
  99. LORAZEPAM [Concomitant]
     Active Substance: LORAZEPAM
     Dosage: 1 DOSAGE FORMS, BID
     Route: 065
     Dates: start: 20241217
  100. LORAZEPAM [Concomitant]
     Active Substance: LORAZEPAM
     Dosage: 1 DOSAGE FORMS, BID
     Dates: start: 20241217
  101. DOLIPRANE [Concomitant]
     Active Substance: ACETAMINOPHEN
     Indication: Product used for unknown indication
     Dosage: 3 DOSAGE FORMS
  102. DOLIPRANE [Concomitant]
     Active Substance: ACETAMINOPHEN
     Dosage: 3 DOSAGE FORMS
     Route: 065
  103. DOLIPRANE [Concomitant]
     Active Substance: ACETAMINOPHEN
     Dosage: 3 DOSAGE FORMS
     Route: 065
  104. DOLIPRANE [Concomitant]
     Active Substance: ACETAMINOPHEN
     Dosage: 3 DOSAGE FORMS

REACTIONS (3)
  - Suicidal ideation [Not Recovered/Not Resolved]
  - Depression [Not Recovered/Not Resolved]
  - Melanoderma [Not Recovered/Not Resolved]

NARRATIVE: CASE EVENT DATE: 20180501
